FAERS Safety Report 24083589 (Version 1)
Quarter: 2024Q3

REPORT INFORMATION
  Report Type: Report from Study
  Country: GB (occurrence: GB)
  Receive Date: 20240712
  Receipt Date: 20240712
  Transmission Date: 20241017
  Serious: Yes (Other)
  Sender: IPSEN
  Company Number: GB-Korea IPSEN-2023-05105

PATIENT
  Sex: Male

DRUGS (2)
  1. LANREOTIDE ACETATE [Suspect]
     Active Substance: LANREOTIDE ACETATE
     Indication: Neuroendocrine tumour
     Dosage: 120MG/0.5ML
     Route: 058
  2. LANREOTIDE ACETATE [Suspect]
     Active Substance: LANREOTIDE ACETATE
     Dosage: 120MG/0.5ML
     Route: 058

REACTIONS (3)
  - Bradycardia [Unknown]
  - Malaise [Not Recovered/Not Resolved]
  - Product dose omission issue [Unknown]
